FAERS Safety Report 8321387-3 (Version None)
Quarter: 2012Q2

REPORT INFORMATION
  Report Type: 
  Country: None (occurrence: None)
  Receive Date: 20120430
  Receipt Date: 20120423
  Transmission Date: 20120825
  Serious: Yes (Death)
  Sender: FDA-Public Use
  Company Number: FR-ASTELLAS-2012EU001298

PATIENT
  Sex: Female
  Weight: 5 kg

DRUGS (9)
  1. SUFENTANIL CITRATE [Concomitant]
     Indication: SEDATION
     Dosage: 1.2 UG/KG, UNKNOWN/D
     Route: 042
     Dates: start: 20111225, end: 20120303
  2. MYCAMINE [Suspect]
     Indication: FUNGAEMIA
     Dosage: 4 MG/KG, UNKNOWN/D
     Route: 065
     Dates: start: 20120119, end: 20120127
  3. MYCAMINE [Suspect]
     Dosage: 12.5 MG/KG, UNKNOWN/D
     Route: 065
     Dates: start: 20120210, end: 20120304
  4. MYCAMINE [Suspect]
     Indication: SYSTEMIC CANDIDA
     Dosage: 2 MG/KG, UNKNOWN/D
     Route: 065
  5. BACTRIM [Concomitant]
     Indication: PROPHYLAXIS
     Dosage: 20 MG/KG, OTHER
     Route: 042
     Dates: start: 20111226, end: 20120303
  6. MYCAMINE [Suspect]
     Dosage: 12 MG/KG, UNKNOWN/D
     Route: 065
     Dates: start: 20120127, end: 20120202
  7. MYCAMINE [Suspect]
     Dosage: 10 MG/KG, UNKNOWN/D
     Route: 065
     Dates: start: 20120204, end: 20120209
  8. NORADRENALIN [Concomitant]
     Indication: HAEMODYNAMIC INSTABILITY
     Dosage: UNK
     Route: 042
     Dates: start: 20111225, end: 20120126
  9. MIDAZOLAM HCL [Concomitant]
     Indication: SEDATION
     Dosage: 10 MG/KG, UNKNOWN/D
     Route: 042
     Dates: start: 20111225, end: 20120303

REACTIONS (6)
  - DRUG INEFFECTIVE [None]
  - THROMBOCYTOPENIA [None]
  - INCORRECT DOSE ADMINISTERED [None]
  - RASH [None]
  - RENAL FAILURE [None]
  - MULTI-ORGAN FAILURE [None]
